FAERS Safety Report 6028768-1 (Version None)
Quarter: 2009Q1

REPORT INFORMATION
  Report Type: 
  Country: None (occurrence: None)
  Receive Date: 20090106
  Receipt Date: 20090105
  Transmission Date: 20090719
  Serious: Yes (Other)
  Sender: FDA-Public Use
  Company Number: A0762371A

PATIENT
  Age: 88 Year
  Sex: Female

DRUGS (8)
  1. ARIXTRA [Suspect]
     Indication: DEEP VEIN THROMBOSIS
     Route: 058
     Dates: start: 20081201
  2. ENOXAPARIN SODIUM [Suspect]
     Indication: DEEP VEIN THROMBOSIS
     Dosage: 40MG PER DAY
     Route: 058
     Dates: start: 20081129, end: 20081201
  3. ALBUTEROL [Concomitant]
  4. LEVAQUIN [Concomitant]
  5. COZAAR [Concomitant]
  6. DETROL LA [Concomitant]
  7. PARACETAMOL [Concomitant]
  8. ASPIRIN [Concomitant]

REACTIONS (3)
  - CONTUSION [None]
  - ERYTHEMA [None]
  - NECROSIS [None]
